FAERS Safety Report 11435857 (Version 1)
Quarter: 2015Q3

REPORT INFORMATION
  Report Type: Spontaneous
  Country: US (occurrence: US)
  Receive Date: 20150821
  Receipt Date: 20150821
  Transmission Date: 20151125
  Serious: No
  Sender: FDA-Public Use
  Company Number: US-ELI_LILLY_AND_COMPANY-US201308006556

PATIENT
  Sex: Male

DRUGS (5)
  1. HUMULIN N [Suspect]
     Active Substance: INSULIN HUMAN
     Indication: TYPE 2 DIABETES MELLITUS
     Dosage: 39 U, EACH MORNING
     Route: 058
  2. HUMULIN N [Suspect]
     Active Substance: INSULIN HUMAN
     Dosage: 24 U, EACH EVENING
     Route: 058
  3. INSULIN HUMAN [Suspect]
     Active Substance: INSULIN HUMAN
     Dosage: UNK
     Route: 058
  4. INSULIN HUMAN [Suspect]
     Active Substance: INSULIN HUMAN
     Indication: TYPE 2 DIABETES MELLITUS
     Dosage: 23 U, EACH MORNING
     Route: 058
  5. INSULIN HUMAN [Suspect]
     Active Substance: INSULIN HUMAN
     Dosage: 19 U, EACH EVENING
     Route: 058

REACTIONS (4)
  - Incorrect product storage [Unknown]
  - Blood glucose increased [Unknown]
  - Drug ineffective [Unknown]
  - Pollakiuria [Unknown]
